FAERS Safety Report 25406857 (Version 4)
Quarter: 2025Q3

REPORT INFORMATION
  Report Type: Report from Study
  Country: US (occurrence: US)
  Receive Date: 20250606
  Receipt Date: 20250812
  Transmission Date: 20251020
  Serious: Yes (Other)
  Sender: ACADIA PHARMACEUTICALS
  Company Number: US-ACADIA PHARMACEUTICALS INC.-ACA-2025-TRF-006644

PATIENT
  Sex: Female
  Weight: 47.1 kg

DRUGS (5)
  1. DAYBUE [Suspect]
     Active Substance: TROFINETIDE
     Indication: Rett syndrome
     Dosage: 15 MILLILITER, BID
     Route: 048
     Dates: start: 20240613, end: 20250607
  2. AMITRIPTYLINE [Concomitant]
     Active Substance: AMITRIPTYLINE
  3. LORATADINE [Concomitant]
     Active Substance: LORATADINE
  4. VITAMINS NOS [Concomitant]
     Active Substance: VITAMINS
  5. MIRALAX [Concomitant]
     Active Substance: POLYETHYLENE GLYCOL 3350

REACTIONS (8)
  - Seizure [Not Recovered/Not Resolved]
  - Abdominal discomfort [Not Recovered/Not Resolved]
  - Aggression [Not Recovered/Not Resolved]
  - Discomfort [Unknown]
  - Menstruation irregular [Unknown]
  - Cyst [Unknown]
  - Pain [Unknown]
  - Underdose [Not Recovered/Not Resolved]
